FAERS Safety Report 7086614-1 (Version None)
Quarter: 2010Q4

REPORT INFORMATION
  Report Type: 
  Country: None (occurrence: None)
  Receive Date: 20101105
  Receipt Date: 20101026
  Transmission Date: 20110411
  Serious: Yes (Other)
  Sender: FDA-Public Use
  Company Number: US-ELI_LILLY_AND_COMPANY-US201011000490

PATIENT
  Sex: Female

DRUGS (1)
  1. EFFIENT [Suspect]
     Indication: STENT PLACEMENT
     Dates: start: 20100817

REACTIONS (3)
  - CORONARY ARTERY BYPASS [None]
  - PLATELET COUNT ABNORMAL [None]
  - THROMBOSIS IN DEVICE [None]
